FAERS Safety Report 7926216-5 (Version None)
Quarter: 2011Q4

REPORT INFORMATION
  Report Type: 
  Country: None (occurrence: None)
  Receive Date: 20111118
  Receipt Date: 20111108
  Transmission Date: 20120403
  Serious: Yes (Hospitalization)
  Sender: FDA-Public Use
  Company Number: JP-AMGEN-JPNSP2011048469

PATIENT
  Age: 82 Year
  Sex: Female
  Weight: 34 kg

DRUGS (14)
  1. ADALAT [Concomitant]
     Indication: HYPERTENSION
     Dosage: 40 MG, 1X/DAY
     Route: 048
     Dates: start: 20091001, end: 20101007
  2. MAGNESIUM OXIDE [Concomitant]
     Dosage: 250 MG, 3X/DAY
     Route: 048
     Dates: start: 20070201, end: 20101121
  3. PREDNISOLONE [Concomitant]
     Dosage: 4 MG, 1X/DAY
     Route: 048
     Dates: start: 20100708, end: 20100830
  4. CLARITHROMYCIN [Concomitant]
     Indication: ATYPICAL MYCOBACTERIAL INFECTION
     Dosage: 400 MG, 1X/DAY
     Route: 048
     Dates: start: 20060802, end: 20101121
  5. PREDNISOLONE [Concomitant]
     Dosage: 3 MG, 1X/DAY
     Route: 048
     Dates: start: 20100831, end: 20101002
  6. RABEPRAZOLE SODIUM [Concomitant]
     Indication: GASTRIC ULCER
     Dosage: 10 MG, 1X/DAY
     Route: 048
     Dates: start: 20070201, end: 20101121
  7. FOLIC ACID [Concomitant]
     Indication: RHEUMATOID ARTHRITIS
     Dosage: 5 MG, 1X/DAY
     Route: 048
     Dates: start: 20070201, end: 20100709
  8. SELBEX [Concomitant]
     Indication: GASTRIC ULCER
     Dosage: 50 MG, 3X/DAY
     Route: 048
     Dates: start: 20070201, end: 20101121
  9. RHEUMATREX [Suspect]
     Indication: RHEUMATOID ARTHRITIS
     Dosage: 8 MG, WEEKLY
     Route: 048
     Dates: start: 20070201, end: 20100709
  10. PREDNISOLONE [Concomitant]
     Dosage: 20 MG, 1X/DAY
     Route: 048
     Dates: start: 20101003
  11. ADALIMUMAB [Concomitant]
     Dosage: UNK
  12. ENBREL [Suspect]
     Indication: RHEUMATOID ARTHRITIS
     Dosage: 25 MG, 2 TIMES/WK
     Route: 058
     Dates: start: 20060904, end: 20100716
  13. PREDNISOLONE [Concomitant]
     Indication: RHEUMATOID ARTHRITIS
     Dosage: 5 MG, 1X/DAY
     Route: 048
     Dates: start: 20051001, end: 20100707
  14. TRICHLORMETHIAZIDE [Concomitant]
     Indication: HYPERTENSION
     Dosage: 2 MG, 1X/DAY
     Route: 048
     Dates: start: 20070201, end: 20101121

REACTIONS (1)
  - PNEUMONIA [None]
